FAERS Safety Report 10257190 (Version 3)
Quarter: 2014Q3

REPORT INFORMATION
  Report Type: Spontaneous
  Country: DE (occurrence: DE)
  Receive Date: 20140625
  Receipt Date: 20140704
  Transmission Date: 20150326
  Serious: Yes (Hospitalization, Other)
  Sender: FDA-Public Use
  Company Number: DE-AMGEN-DEUSP2014039529

PATIENT
  Age: 70 Year
  Sex: Male

DRUGS (6)
  1. RASILEZ [Concomitant]
     Active Substance: ALISKIREN
     Indication: HYPERTENSION
     Dosage: 150 UNK, UNK
     Route: 048
     Dates: start: 2007
  2. MIMPARA [Suspect]
     Active Substance: CINACALCET HYDROCHLORIDE
     Indication: RENAL FAILURE CHRONIC
     Dosage: 30 MG, UNK
     Route: 065
  3. PANTOPRAZOLE [Concomitant]
     Active Substance: PANTOPRAZOLE SODIUM
     Indication: GASTROOESOPHAGEAL REFLUX DISEASE
     Dosage: 40 UNK, UNK
     Dates: start: 2007
  4. RENVELA [Concomitant]
     Active Substance: SEVELAMER CARBONATE
     Indication: BLOOD PHOSPHORUS DECREASED
     Dosage: 9 UNK, UNK
     Route: 048
     Dates: start: 2011
  5. ASPIRIN. [Concomitant]
     Active Substance: ASPIRIN
     Indication: PERIPHERAL ARTERIAL OCCLUSIVE DISEASE
     Dosage: 100 UNK, UNK
     Dates: start: 2000
  6. HYDROCORTISONE. [Concomitant]
     Active Substance: HYDROCORTISONE
     Indication: ADDISON^S DISEASE
     Dosage: 40 UNK, UNK
     Route: 048
     Dates: start: 2005

REACTIONS (4)
  - Obstruction [Unknown]
  - Investigation [Unknown]
  - Cough [Unknown]
  - Increased viscosity of bronchial secretion [Unknown]

NARRATIVE: CASE EVENT DATE: 2013
